FAERS Safety Report 5787338-0 (Version None)
Quarter: 2008Q2

REPORT INFORMATION
  Report Type: 
  Country: None (occurrence: None)
  Receive Date: 20080625
  Receipt Date: 20080617
  Transmission Date: 20081010
  Serious: Yes (Hospitalization, Other)
  Sender: FDA-Public Use
  Company Number: US-AMGEN-US278390

PATIENT
  Sex: Female
  Weight: 59 kg

DRUGS (8)
  1. EPOGEN [Suspect]
     Indication: DIALYSIS
     Route: 065
     Dates: start: 20040101, end: 20080505
  2. NOVOLIN 70/30 [Concomitant]
     Route: 058
     Dates: start: 20070413
  3. PAXIL [Concomitant]
     Route: 048
     Dates: start: 20071005
  4. KEPPRA [Concomitant]
     Route: 048
     Dates: start: 20080104
  5. PREVACID [Concomitant]
     Route: 048
     Dates: start: 20080215
  6. LEVAQUIN [Concomitant]
     Route: 048
     Dates: start: 20080215
  7. FOSRENOL [Concomitant]
     Route: 048
     Dates: start: 20080218
  8. NEPHRO-VITE [Concomitant]
     Route: 048
     Dates: start: 20060414

REACTIONS (2)
  - APLASIA PURE RED CELL [None]
  - PANCYTOPENIA [None]
